FAERS Safety Report 24835971 (Version 1)
Quarter: 2025Q1

REPORT INFORMATION
  Report Type: Report from Study
  Country: US (occurrence: US)
  Receive Date: 20250113
  Receipt Date: 20250113
  Transmission Date: 20250409
  Serious: Yes (Death, Other)
  Sender: TAKEDA
  Company Number: US-TAKEDA-2023TUS022031

PATIENT
  Age: 93 Year
  Sex: Female

DRUGS (2)
  1. PONATINIB [Suspect]
     Active Substance: PONATINIB
     Indication: Chronic myeloid leukaemia
  2. PONATINIB [Suspect]
     Active Substance: PONATINIB
     Dosage: 15 MILLIGRAM, QD

REACTIONS (1)
  - Death [Fatal]

NARRATIVE: CASE EVENT DATE: 20250109
